FAERS Safety Report 12564783 (Version 1)
Quarter: 2016Q3

REPORT INFORMATION
  Report Type: Spontaneous
  Country: US (occurrence: None)
  Receive Date: 20160715
  Receipt Date: 20160715
  Transmission Date: 20161109
  Serious: No
  Sender: FDA-Public Use
  Company Number: None

PATIENT
  Age: 46 Year
  Sex: Male

DRUGS (1)
  1. ATRIPLA [Suspect]
     Active Substance: EFAVIRENZ\EMTRICITABINE\TENOFOVIR DISOPROXIL FUMARATE
     Indication: HIV INFECTION
     Dosage: ATRIPIA EFAVIRENZ-EMTRIC Q DAILY ORAL
     Route: 048
     Dates: start: 20160712, end: 20160713

REACTIONS (5)
  - Chills [None]
  - Fatigue [None]
  - Pain [None]
  - Pyrexia [None]
  - Peripheral coldness [None]

NARRATIVE: CASE EVENT DATE: 20160713
